FAERS Safety Report 4889583-5 (Version None)
Quarter: 2006Q1

REPORT INFORMATION
  Report Type: 
  Country: None (occurrence: None)
  Receive Date: 20060120
  Receipt Date: 20051205
  Transmission Date: 20060701
  Serious: Yes (Hospitalization)
  Sender: FDA-Public Use
  Company Number: 2005159844

PATIENT
  Age: 63 Year
  Sex: Male

DRUGS (4)
  1. AMLODIPINE [Suspect]
     Indication: HYPERTENSION
     Dosage: (5 MG)
     Dates: start: 20050501, end: 20051101
  2. KENZEN (CANDESARTAN CILEXETIL) [Suspect]
     Indication: ILL-DEFINED DISORDER
     Dates: end: 20050501
  3. LANSOPRAZOLE [Concomitant]
  4. COVERSYL (PERINDOPRIL) [Suspect]
     Indication: ILL-DEFINED DISORDER

REACTIONS (13)
  - ACNE [None]
  - AGEUSIA [None]
  - ALOPECIA [None]
  - BLOOD CREATININE INCREASED [None]
  - BLOOD PRESSURE INCREASED [None]
  - BLOOD SODIUM DECREASED [None]
  - BLOOD UREA INCREASED [None]
  - DRY MOUTH [None]
  - GAMMA-GLUTAMYLTRANSFERASE INCREASED [None]
  - PRURITUS [None]
  - RASH PAPULAR [None]
  - RASH VESICULAR [None]
  - TRANSAMINASES INCREASED [None]
